FAERS Safety Report 15264025 (Version 1)
Quarter: 2018Q3

REPORT INFORMATION
  Report Type: Spontaneous
  Country: US (occurrence: US)
  Receive Date: 20180721
  Receipt Date: 20180721
  Transmission Date: 20181010
  Serious: Yes (Disabling)
  Sender: FDA-Public Use
  Company Number: None

PATIENT
  Age: 7 Year
  Sex: Male
  Weight: 22.95 kg

DRUGS (1)
  1. ARIPIRAZOLE ORAL SOLUTION [Suspect]
     Active Substance: ARIPIPRAZOLE
     Indication: AUTISM SPECTRUM DISORDER
     Dosage: ?          QUANTITY:2 OUNCE(S);?
     Route: 048
     Dates: start: 20180713, end: 20180716

REACTIONS (4)
  - Hypokinesia [None]
  - Neck pain [None]
  - Rash [None]
  - Muscle spasms [None]

NARRATIVE: CASE EVENT DATE: 20180716
